FAERS Safety Report 6334772-6 (Version None)
Quarter: 2009Q3

REPORT INFORMATION
  Report Type: 
  Country: None (occurrence: None)
  Receive Date: 20090831
  Receipt Date: 20090825
  Transmission Date: 20100115
  Serious: Yes (Other)
  Sender: FDA-Public Use
  Company Number: PHEH2009US09920

PATIENT
  Age: 73 Year
  Sex: Female

DRUGS (2)
  1. TEKTURNA [Suspect]
     Indication: BLOOD PRESSURE MANAGEMENT
     Dosage: 150 MG, QD
     Route: 048
  2. AVALIDE [Suspect]
     Indication: BLOOD PRESSURE MANAGEMENT
     Dosage: UNK, UNK

REACTIONS (3)
  - BRADYCARDIA [None]
  - GAMMA-GLUTAMYLTRANSFERASE INCREASED [None]
  - HEPATIC ENZYME INCREASED [None]
